FAERS Safety Report 10662429 (Version 1)
Quarter: 2014Q4

REPORT INFORMATION
  Report Type: Spontaneous
  Country: DE (occurrence: DE)
  Receive Date: 20141218
  Receipt Date: 20141218
  Transmission Date: 20150529
  Serious: Yes (Congenital Anomaly, Other)
  Sender: FDA-Public Use
  Company Number: DE-TEVA-527963GER

PATIENT
  Age: 1 Day
  Sex: Male

DRUGS (3)
  1. L-THYROXIN [Concomitant]
     Active Substance: LEVOTHYROXINE SODIUM
     Indication: HYPOTHYROIDISM
     Route: 064
     Dates: start: 20131030, end: 20140806
  2. CITALOPRAM [Suspect]
     Active Substance: CITALOPRAM HYDROBROMIDE
     Indication: DEPRESSION
     Dosage: 20 MILLIGRAM DAILY; 20 (MG/D )/ REDUCED TO 10MG/D IN ^6TH MONTH^
     Route: 064
     Dates: start: 20131108
  3. CITALOPRAM [Suspect]
     Active Substance: CITALOPRAM HYDROBROMIDE
     Dosage: 10 MILLIGRAM DAILY; 20 MG/D/ REDUCED TO 10MG/D IN ^6TH MONTH^
     Route: 064
     Dates: end: 20140806

REACTIONS (7)
  - Neonatal infection [Recovered/Resolved]
  - Electrocardiogram QT prolonged [Recovering/Resolving]
  - Foetal exposure during pregnancy [Unknown]
  - Small for dates baby [Recovering/Resolving]
  - Hypothermia neonatal [Recovered/Resolved]
  - Atrial septal defect [Unknown]
  - Bradycardia neonatal [Recovered/Resolved]

NARRATIVE: CASE EVENT DATE: 20140806
